FAERS Safety Report 6749820-9 (Version None)
Quarter: 2010Q2

REPORT INFORMATION
  Report Type: 
  Country: None (occurrence: None)
  Receive Date: 20100601
  Receipt Date: 20100520
  Transmission Date: 20101027
  Serious: Yes (Other)
  Sender: FDA-Public Use
  Company Number: JP-MERCK-1005USA03087

PATIENT
  Age: 75 Year
  Sex: Male

DRUGS (7)
  1. JANUVIA [Suspect]
     Indication: DIABETES MELLITUS
     Route: 048
     Dates: start: 20100426, end: 20100514
  2. AMLODIPINE [Concomitant]
     Indication: HYPERTENSION
     Route: 048
  3. YOKU-KAN-SAN-KA-CHIMPI-HANGE [Concomitant]
     Route: 048
  4. PLETAL [Concomitant]
     Indication: CEREBRAL INFARCTION
     Route: 048
  5. ARICEPT [Concomitant]
     Indication: DEMENTIA ALZHEIMER'S TYPE
     Route: 048
     Dates: start: 20100325
  6. MELBIN [Concomitant]
     Indication: DIABETES MELLITUS
     Route: 048
  7. ACTOS [Concomitant]
     Indication: DIABETES MELLITUS
     Route: 048

REACTIONS (1)
  - HYPOGLYCAEMIA [None]
